FAERS Safety Report 6844490-3 (Version None)
Quarter: 2010Q3

REPORT INFORMATION
  Report Type: 
  Country: None (occurrence: None)
  Receive Date: 20100715
  Receipt Date: 20100708
  Transmission Date: 20110219
  Serious: Yes (Life-Threatening)
  Sender: FDA-Public Use
  Company Number: JP-JNJFOC-20100702968

PATIENT
  Age: 13 Month
  Sex: Male

DRUGS (2)
  1. LEUSTATIN [Suspect]
     Indication: LANGERHANS' CELL HISTIOCYTOSIS
     Route: 042
  2. CYTARABINE [Suspect]
     Indication: LANGERHANS' CELL HISTIOCYTOSIS
     Route: 065

REACTIONS (3)
  - BONE MARROW FAILURE [None]
  - BRONCHOPULMONARY ASPERGILLOSIS [None]
  - LANGERHANS' CELL HISTIOCYTOSIS [None]
